FAERS Safety Report 21451876 (Version 1)
Quarter: 2022Q4

REPORT INFORMATION
  Report Type: Spontaneous
  Country: BG (occurrence: None)
  Receive Date: 20221013
  Receipt Date: 20221013
  Transmission Date: 20230112
  Serious: Yes (Hospitalization)
  Sender: FDA-Public Use
  Company Number: 2022A341493

PATIENT
  Sex: Male

DRUGS (6)
  1. TICAGRELOR [Suspect]
     Active Substance: TICAGRELOR
     Indication: Myocardial infarction
     Route: 048
     Dates: start: 20210616
  2. ASA-100 [Concomitant]
     Dosage: 100 MG IN THE EVENING
  3. METOPROLOL SUCCINATE [Concomitant]
     Active Substance: METOPROLOL SUCCINATE
     Dosage: 2X 25 MG DAILY
  4. FEBUXOSTAT [Concomitant]
     Active Substance: FEBUXOSTAT
     Dosage: 120 MG/ DAY
  5. ROSUVASTI [Concomitant]
     Dosage: 30 MG/ EVENING
  6. AMIODARONE [Concomitant]
     Active Substance: AMIODARONE

REACTIONS (3)
  - Fatigue [Unknown]
  - Palpitations [Unknown]
  - Dyspnoea exertional [Unknown]
